FAERS Safety Report 6072548-8 (Version None)
Quarter: 2009Q1

REPORT INFORMATION
  Report Type: 
  Country: None (occurrence: None)
  Receive Date: 20090210
  Receipt Date: 20090203
  Transmission Date: 20090719
  Serious: Yes (Hospitalization)
  Sender: FDA-Public Use
  Company Number: US-AVENTIS-200910933US

PATIENT
  Sex: Female

DRUGS (10)
  1. LANTUS [Suspect]
     Route: 058
  2. OPTICLIK (INSULIN INJECTION PEN) [Suspect]
     Indication: INSULIN-REQUIRING TYPE 2 DIABETES MELLITUS
  3. OMEPRAZOLE [Concomitant]
  4. ISOSORBIDE MONONITRATE [Concomitant]
  5. DETROL LA [Concomitant]
  6. CEFUROXIME [Concomitant]
     Dates: start: 20090101
  7. VYTORIN [Concomitant]
     Dosage: DOSE: 10/40
  8. SERTRALINE [Concomitant]
  9. METPHORMIN [Concomitant]
  10. DICLOFENAC [Concomitant]

REACTIONS (1)
  - DIVERTICULITIS [None]
